FAERS Safety Report 6274025-8 (Version None)
Quarter: 2009Q3

REPORT INFORMATION
  Report Type: 
  Country: None (occurrence: None)
  Receive Date: 20090720
  Receipt Date: 20090708
  Transmission Date: 20100115
  Serious: Yes (Hospitalization, Other)
  Sender: FDA-Public Use
  Company Number: IT-ELI_LILLY_AND_COMPANY-IT200907001424

PATIENT
  Sex: Female

DRUGS (5)
  1. ZYPREXA [Suspect]
     Indication: DEPRESSION
     Dosage: 5 MG, DAILY (1/D)
     Route: 048
     Dates: start: 20061101, end: 20090504
  2. CARBOLITHIUM [Concomitant]
  3. TRITTICO [Concomitant]
  4. GLIBOMET [Concomitant]
  5. ZANEDIP [Concomitant]

REACTIONS (4)
  - ESCHERICHIA SEPSIS [None]
  - OFF LABEL USE [None]
  - RENAL FAILURE ACUTE [None]
  - RHABDOMYOLYSIS [None]
